FAERS Safety Report 7222622-5 (Version None)
Quarter: 2011Q1

REPORT INFORMATION
  Report Type: 
  Country: None (occurrence: None)
  Receive Date: 20110112
  Receipt Date: 20110107
  Transmission Date: 20110831
  Serious: Yes (Death)
  Sender: FDA-Public Use
  Company Number: JP-ABBOTT-11P-087-0694589-00

PATIENT
  Age: 83 Year
  Sex: Female

DRUGS (8)
  1. NORVASC [Concomitant]
     Indication: PRODUCT USED FOR UNKNOWN INDICATION
     Route: 048
  2. PARIET [Concomitant]
     Indication: PRODUCT USED FOR UNKNOWN INDICATION
     Route: 048
  3. DEPAS [Concomitant]
     Indication: PRODUCT USED FOR UNKNOWN INDICATION
     Dosage: 1 DOSAGE FORM DAILY DOSE
  4. KLARICID TAB [Suspect]
     Indication: PNEUMONIA
     Dosage: 400 MG DAILY DOSE
     Route: 048
     Dates: start: 20100901, end: 20101227
  5. ADONA [Concomitant]
     Indication: PRODUCT USED FOR UNKNOWN INDICATION
     Dosage: 90 MG DAILY DOSE
     Route: 048
  6. MYSLEE [Concomitant]
     Indication: PRODUCT USED FOR UNKNOWN INDICATION
     Dosage: 1 DOSAGE FORM DAILY DOSE
  7. TRANSAMIN [Concomitant]
     Indication: PRODUCT USED FOR UNKNOWN INDICATION
     Dosage: 1500 MG DAILY DOSE
     Route: 048
  8. MAGMITT [Concomitant]
     Indication: PRODUCT USED FOR UNKNOWN INDICATION
     Dosage: 990 MG DAILY DOSE
     Route: 048

REACTIONS (2)
  - LUNG NEOPLASM MALIGNANT [None]
  - TONGUE DISCOLOURATION [None]
